FAERS Safety Report 7241588-5 (Version None)
Quarter: 2011Q1

REPORT INFORMATION
  Report Type: 
  Country: None (occurrence: None)
  Receive Date: 20110124
  Receipt Date: 20110119
  Transmission Date: 20110831
  Serious: Yes (Hospitalization, Disabling, Other)
  Sender: FDA-Public Use
  Company Number: US-MERCK-0802USA02812

PATIENT
  Age: 59 Year
  Sex: Female
  Weight: 83 kg

DRUGS (6)
  1. FOSAMAX [Suspect]
     Route: 048
     Dates: end: 20080101
  2. LIPITOR [Concomitant]
     Route: 065
  3. FOSAMAX [Suspect]
     Indication: OSTEOPOROSIS PROPHYLAXIS
     Route: 048
     Dates: start: 19980101
  4. VITAMIN D (UNSPECIFIED) [Concomitant]
     Route: 065
  5. SYNTHROID [Concomitant]
     Indication: HYPOTHYROIDISM
     Route: 048
  6. CALCIUM (UNSPECIFIED) [Concomitant]
     Route: 065

REACTIONS (2)
  - FEMUR FRACTURE [None]
  - LOW TURNOVER OSTEOPATHY [None]
